FAERS Safety Report 7971862-6 (Version None)
Quarter: 2011Q4

REPORT INFORMATION
  Report Type: 
  Country: None (occurrence: None)
  Receive Date: 20111212
  Receipt Date: 20111201
  Transmission Date: 20120403
  Serious: Yes (Other)
  Sender: FDA-Public Use
  Company Number: BR-ASTRAZENECA-2011SE73476

PATIENT
  Age: 68 Year
  Sex: Female

DRUGS (1)
  1. ATACAND [Suspect]
     Route: 048

REACTIONS (2)
  - HYPERTENSION [None]
  - CEREBROVASCULAR ACCIDENT [None]
